FAERS Safety Report 17528184 (Version 11)
Quarter: 2022Q4

REPORT INFORMATION
  Report Type: Report from Study
  Country: CA (occurrence: CA)
  Receive Date: 20200311
  Receipt Date: 20221118
  Transmission Date: 20230113
  Serious: Yes (Other)
  Sender: FDA-Public Use
  Company Number: PHHY2019CA069815

PATIENT
  Sex: Male

DRUGS (15)
  1. COSENTYX [Suspect]
     Active Substance: SECUKINUMAB
     Indication: Psoriasis
     Dosage: 300 MG, Q2W
     Route: 058
     Dates: start: 20190201
  2. COSENTYX [Suspect]
     Active Substance: SECUKINUMAB
     Dosage: 300 MG, QMO
     Route: 058
     Dates: start: 20190301
  3. COSENTYX [Suspect]
     Active Substance: SECUKINUMAB
     Dosage: 300 MG, QMO
     Route: 058
     Dates: start: 20190401
  4. COSENTYX [Suspect]
     Active Substance: SECUKINUMAB
     Dosage: 300 MG, QMO
     Route: 058
     Dates: start: 20190701
  5. COSENTYX [Suspect]
     Active Substance: SECUKINUMAB
     Dosage: 300 MG, QMO
     Route: 058
     Dates: start: 20191001
  6. COSENTYX [Suspect]
     Active Substance: SECUKINUMAB
     Dosage: 300 MG, QMO
     Route: 058
  7. COSENTYX [Suspect]
     Active Substance: SECUKINUMAB
     Dosage: 300 MG, Q3W
     Route: 058
  8. COSENTYX [Suspect]
     Active Substance: SECUKINUMAB
     Dosage: 300 MG, Q2W
     Route: 058
     Dates: start: 2021
  9. COSENTYX [Suspect]
     Active Substance: SECUKINUMAB
     Dosage: 300 MG, Q2W
     Route: 058
  10. FOLIC ACID [Concomitant]
     Active Substance: FOLIC ACID
     Indication: Product used for unknown indication
     Dosage: UNK
     Route: 065
  11. LIDERMA [Concomitant]
     Indication: Product used for unknown indication
     Dosage: UNK
     Route: 065
  12. ARISTOCOR [Concomitant]
     Indication: Product used for unknown indication
     Dosage: UNK
     Route: 065
  13. ACITRETIN [Concomitant]
     Active Substance: ACITRETIN
     Indication: Product used for unknown indication
     Dosage: UNK
     Route: 065
  14. CYCLOSPORINE [Concomitant]
     Active Substance: CYCLOSPORINE
     Indication: Product used for unknown indication
     Dosage: UNK
     Route: 065
  15. FLUTICASONE FUROATE [Concomitant]
     Active Substance: FLUTICASONE FUROATE
     Indication: Product used for unknown indication
     Dosage: UNK UNK, BID

REACTIONS (34)
  - Pneumonia [Recovering/Resolving]
  - Fall [Unknown]
  - Head injury [Unknown]
  - Cough [Unknown]
  - Discomfort [Unknown]
  - Dysphonia [Unknown]
  - Abdominal pain upper [Unknown]
  - Speech disorder [Unknown]
  - Dyspnoea [Unknown]
  - Wheezing [Unknown]
  - Increased upper airway secretion [Unknown]
  - Injection site pain [Unknown]
  - Dry throat [Unknown]
  - Nasal congestion [Unknown]
  - Asthenia [Unknown]
  - Depressed mood [Unknown]
  - Ill-defined disorder [Unknown]
  - Rash [Unknown]
  - Condition aggravated [Unknown]
  - Skin discomfort [Unknown]
  - Dyspepsia [Unknown]
  - Rhinorrhoea [Unknown]
  - Psoriasis [Not Recovered/Not Resolved]
  - Skin plaque [Recovered/Resolved]
  - Skin irritation [Unknown]
  - Erythema [Unknown]
  - Nail psoriasis [Unknown]
  - Skin plaque [Unknown]
  - Accidental exposure to product [Unknown]
  - Incorrect dose administered [Unknown]
  - Inappropriate schedule of product administration [Unknown]
  - Therapeutic product effect incomplete [Unknown]
  - Drug ineffective [Unknown]
  - Off label use [Unknown]

NARRATIVE: CASE EVENT DATE: 20190101
